FAERS Safety Report 15559976 (Version 1)
Quarter: 2018Q4

REPORT INFORMATION
  Report Type: Spontaneous
  Country: US (occurrence: US)
  Receive Date: 20181023
  Receipt Date: 20181023
  Transmission Date: 20190205
  Serious: Yes (Hospitalization)
  Sender: FDA-Public Use
  Company Number: None

PATIENT
  Age: 64 Year
  Sex: Male
  Weight: 69 kg

DRUGS (14)
  1. FOLVITE [Concomitant]
     Active Substance: FOLIC ACID
  2. ZADITOR [Concomitant]
     Active Substance: KETOTIFEN FUMARATE
  3. PROTONIX [Concomitant]
     Active Substance: PANTOPRAZOLE SODIUM
  4. WARFARIN [Suspect]
     Active Substance: WARFARIN
     Dosage: ?          OTHER FREQUENCY:Q MWF;?
     Route: 048
  5. FE [Concomitant]
     Active Substance: IRON
  6. ALBUTEROL. [Concomitant]
     Active Substance: ALBUTEROL
  7. B6 [Concomitant]
     Active Substance: PYRIDOXINE HYDROCHLORIDE
  8. APAP [Concomitant]
     Active Substance: ACETAMINOPHEN
  9. VITC [Concomitant]
  10. OXYCODONE [Concomitant]
     Active Substance: OXYCODONE
  11. ALDACTON [Concomitant]
  12. WARFARIN 5MG [Suspect]
     Active Substance: WARFARIN
     Indication: PULMONARY EMBOLISM
     Dosage: ?          OTHER FREQUENCY:Q TTHSS;  RECENT?
     Route: 048
  13. WARFARIN 5MG [Suspect]
     Active Substance: WARFARIN
     Indication: DEEP VEIN THROMBOSIS
     Dosage: ?          OTHER FREQUENCY:Q TTHSS;  RECENT?
     Route: 048
  14. LASIX [Concomitant]
     Active Substance: FUROSEMIDE

REACTIONS (13)
  - Melaena [None]
  - Encephalopathy [None]
  - General physical health deterioration [None]
  - Thrombocytopenia [None]
  - Hypoxia [None]
  - Haemorrhagic anaemia [None]
  - Gastrointestinal haemorrhage [None]
  - Coagulopathy [None]
  - Hypotension [None]
  - Pneumonia [None]
  - Varices oesophageal [None]
  - Haematemesis [None]
  - Oesophageal varices haemorrhage [None]
